FAERS Safety Report 8353309-3 (Version None)
Quarter: 2012Q2

REPORT INFORMATION
  Report Type: 
  Country: None (occurrence: None)
  Receive Date: 20120511
  Receipt Date: 20120504
  Transmission Date: 20120825
  Serious: Yes (Hospitalization)
  Sender: FDA-Public Use
  Company Number: US-BAYER-2011-112396

PATIENT
  Age: 37 Year
  Sex: Female
  Weight: 68.027 kg

DRUGS (11)
  1. ELMIRON [Concomitant]
     Indication: CYSTITIS
  2. SINGULAIR [Concomitant]
     Indication: MULTIPLE ALLERGIES
     Dosage: UNK
     Dates: start: 20030321
  3. PHENADOZ [Concomitant]
     Dosage: 25 MG, UNK
  4. ZITHROMAX [Concomitant]
     Dosage: 205 MG, UNK
  5. ELMIRON [Concomitant]
     Indication: BLADDER PAIN
     Dosage: UNK
     Dates: start: 20030321, end: 20050819
  6. NSAID'S [Concomitant]
     Dosage: UNK
     Dates: start: 19950101
  7. SINGULAIR [Concomitant]
     Dosage: UNK
     Dates: start: 20050101
  8. METHYPREDISOLONE [Concomitant]
     Dosage: 4 MG, UNK
  9. ORTHO TRI-CYCLEN LO [Concomitant]
     Dosage: UNK
     Dates: start: 20060101, end: 20070101
  10. YASMIN [Suspect]
     Indication: CONTRACEPTION
     Dosage: UNK
     Dates: start: 20020717, end: 20060922
  11. CYMBACORT [Concomitant]
     Indication: ASTHMA

REACTIONS (1)
  - CHOLECYSTITIS CHRONIC [None]
